FAERS Safety Report 9844585 (Version 1)
Quarter: 2014Q1

REPORT INFORMATION
  Report Type: Spontaneous
  Country: US (occurrence: None)
  Receive Date: 20140123
  Receipt Date: 20140123
  Transmission Date: 20141002
  Serious: No
  Sender: FDA-Public Use
  Company Number: None

PATIENT
  Age: 42 Year
  Sex: Male
  Weight: 72.58 kg

DRUGS (1)
  1. CIPROFLOXACIN [Suspect]
     Indication: GASTROENTERITIS VIRAL
     Dosage: 1 PILL TWICE DAILY
     Dates: start: 20130905, end: 20130907

REACTIONS (7)
  - Eye pain [None]
  - Dry eye [None]
  - Headache [None]
  - Nausea [None]
  - Eye inflammation [None]
  - Anxiety [None]
  - Product label issue [None]
